FAERS Safety Report 12919229 (Version 3)
Quarter: 2017Q2

REPORT INFORMATION
  Report Type: Spontaneous
  Country: US (occurrence: US)
  Receive Date: 20161108
  Receipt Date: 20170418
  Transmission Date: 20170830
  Serious: Yes (Other)
  Sender: FDA-Public Use
  Company Number: PHEH2016US029046

PATIENT
  Sex: Male

DRUGS (1)
  1. FARYDAK [Suspect]
     Active Substance: PANOBINOSTAT
     Indication: PLASMA CELL MYELOMA
     Dosage: 1 DF, (1 CAPSULE ON MONDAY, 1 CAPSULE ON FRIADAY, 2 WEEKS ON AND 1 WEEK OFF)
     Route: 048
     Dates: start: 20161019

REACTIONS (5)
  - Plasma cell myeloma [Unknown]
  - Vomiting [Unknown]
  - Malignant neoplasm progression [Unknown]
  - Nausea [Unknown]
  - Diarrhoea [Unknown]
